FAERS Safety Report 7517322-8 (Version None)
Quarter: 2011Q2

REPORT INFORMATION
  Report Type: 
  Country: None (occurrence: None)
  Receive Date: 20110601
  Receipt Date: 20110512
  Transmission Date: 20111010
  Serious: No
  Sender: FDA-Public Use
  Company Number: US-B.I. PHARMACEUTICALS,INC./RIDGEFIELD-2011-BP-02731BP

PATIENT
  Age: 76 Year
  Sex: Male
  Weight: 113.4 kg

DRUGS (11)
  1. PRADAXA [Suspect]
     Indication: DRUG THERAPY CHANGED
  2. DILTIAZEM [Concomitant]
     Dosage: 360 MG
  3. PRADAXA [Suspect]
     Indication: ANTICOAGULANT THERAPY
     Dosage: 150 MG
     Dates: start: 20101110, end: 20110131
  4. PRADAXA [Suspect]
     Indication: ATRIAL FIBRILLATION
  5. LISINOPRIL [Concomitant]
     Dosage: 20 MG
  6. CENTRUM SILVER VITAMIN [Concomitant]
  7. METFORMIN HCL [Concomitant]
     Dosage: 500 MG
  8. WARFARIN SODIUM [Concomitant]
  9. ALLOPURINOL [Concomitant]
     Dosage: 300 MG
  10. TAMSULOSIN HCL [Concomitant]
     Dosage: 0.4 MG
  11. ASPIRIN [Concomitant]
     Dosage: 81 MG

REACTIONS (7)
  - RASH PAPULAR [None]
  - AMNESIA [None]
  - HEADACHE [None]
  - VISUAL IMPAIRMENT [None]
  - CONTUSION [None]
  - DIZZINESS [None]
  - DEPRESSED MOOD [None]
